FAERS Safety Report 8683145 (Version 2)
Quarter: 2013Q4

REPORT INFORMATION
  Report Type: Spontaneous
  Country: US (occurrence: US)
  Receive Date: 20120726
  Receipt Date: 20131101
  Transmission Date: 20140711
  Serious: No
  Sender: FDA-Public Use
  Company Number: US-009507513-2012SP034398

PATIENT
  Age: 21 Year
  Sex: Female
  Weight: 57.24 kg

DRUGS (2)
  1. NEXPLANON [Suspect]
     Indication: CONTRACEPTION
     Dosage: 1 DF, UNK
     Route: 059
     Dates: start: 20120614, end: 20120614
  2. NEXPLANON [Suspect]
     Dosage: 1 DF, UNK
     Route: 059
     Dates: start: 20120614, end: 20120614

REACTIONS (1)
  - Medical device complication [Recovered/Resolved]
